FAERS Safety Report 20196748 (Version 1)
Quarter: 2021Q4

REPORT INFORMATION
  Report Type: Spontaneous
  Country: JP (occurrence: JP)
  Receive Date: 20211216
  Receipt Date: 20211216
  Transmission Date: 20220304
  Serious: Yes (Hospitalization)
  Sender: FDA-Public Use
  Company Number: JP-CHUGAI-2021019531

PATIENT
  Age: 4 Month
  Sex: Male
  Weight: 7 kg

DRUGS (2)
  1. HEMLIBRA [Suspect]
     Active Substance: EMICIZUMAB-KXWH
     Indication: Haemophilia A without inhibitors
     Dosage: 21 MILLIGRAM, ONCE/WEEK
     Route: 058
     Dates: start: 20210805, end: 20210826
  2. HEMLIBRA [Suspect]
     Active Substance: EMICIZUMAB-KXWH
     Dosage: 21 MILLIGRAM, ONCE/2WEEKS
     Route: 058
     Dates: start: 20210902

REACTIONS (2)
  - Haemorrhage intracranial [Recovered/Resolved]
  - Therapeutic response decreased [Unknown]

NARRATIVE: CASE EVENT DATE: 20210915
